FAERS Safety Report 21050598 (Version 1)
Quarter: 2022Q3

REPORT INFORMATION
  Report Type: Report from Study
  Country: US (occurrence: US)
  Receive Date: 20220707
  Receipt Date: 20220707
  Transmission Date: 20221027
  Serious: No
  Sender: FDA-Public Use
  Company Number: US-AIMMUNE THERAPEUTICS, INC.-2022AIMT00511

PATIENT

DRUGS (1)
  1. ALLERGENIC EXTRACT- PEANUT ARACHIS HYPOGAEA [Suspect]
     Active Substance: ALLERGENIC EXTRACT- PEANUT ARACHIS HYPOGAEA
     Indication: Food allergy
     Dosage: 300 MG, 1X/DAY
     Route: 048
     Dates: start: 202010, end: 202109

REACTIONS (1)
  - Urticaria [Unknown]
